FAERS Safety Report 16542995 (Version 2)
Quarter: 2019Q3

REPORT INFORMATION
  Report Type: Report from Study
  Country: GB (occurrence: GB)
  Receive Date: 20190709
  Receipt Date: 20190927
  Transmission Date: 20191004
  Serious: Yes (Other)
  Sender: FDA-Public Use
  Company Number: GB-EMD SERONO-9102395

PATIENT
  Age: 80 Year
  Sex: Male

DRUGS (3)
  1. APIXABAN [Suspect]
     Active Substance: APIXABAN
     Indication: ATRIAL FIBRILLATION
  2. SAIZEN [Suspect]
     Active Substance: SOMATROPIN
     Indication: GROWTH HORMONE DEFICIENCY
     Dosage: 6 MG/ 1.03 ML CARTRIDGES
     Dates: start: 20141014
  3. SAIZEN [Suspect]
     Active Substance: SOMATROPIN
     Dosage: UNKNOWN DOSE
     Dates: start: 20141021

REACTIONS (6)
  - Cardiac failure [Unknown]
  - Memory impairment [Unknown]
  - Mental impairment [Unknown]
  - Atrial fibrillation [Unknown]
  - Injection site bruising [Unknown]
  - Blood pressure abnormal [Unknown]

NARRATIVE: CASE EVENT DATE: 201909
